FAERS Safety Report 7131467-6 (Version None)
Quarter: 2010Q4

REPORT INFORMATION
  Report Type: 
  Country: None (occurrence: None)
  Receive Date: 20101201
  Receipt Date: 20101117
  Transmission Date: 20110411
  Serious: Yes (Other)
  Sender: FDA-Public Use
  Company Number: US-PFIZER INC-US-WYE-H16364810

PATIENT
  Sex: Female
  Weight: 77.098 kg

DRUGS (15)
  1. EFFEXOR XR [Suspect]
     Indication: MAJOR DEPRESSION
     Dosage: 37.5 MG, 1X/DAY
     Dates: start: 20090601, end: 20090701
  2. EFFEXOR XR [Suspect]
     Indication: ANXIETY
     Dosage: 37.5 MG, 2X/DAY
     Dates: start: 20090701, end: 20090901
  3. METOPROLOL [Concomitant]
     Dosage: 50 MG, 2X/DAY
  4. LEXAPRO [Concomitant]
     Indication: ANXIETY
     Dosage: 10 MG, 1X/DAY
     Dates: start: 20090601
  5. LEXAPRO [Concomitant]
     Dosage: 5 MG, 1X/DAY
     Dates: start: 20090601, end: 20090601
  6. LEXAPRO [Concomitant]
     Dosage: 5 MG, 2X/DAY
     Dates: start: 20090601, end: 20090601
  7. AMBIEN [Concomitant]
     Indication: INSOMNIA
     Dosage: 12.5 MG, 1X/DAY
  8. TRAZODONE [Concomitant]
     Dosage: 50 MG
  9. CLARITIN [Concomitant]
     Dosage: UNK
  10. NIACIN [Concomitant]
     Dosage: 100 MG, 2X/DAY
  11. ATIVAN [Concomitant]
     Dosage: 1 MG PRN
  12. ZETIA [Concomitant]
     Dosage: 10 MG, 1X/DAY
  13. LORTAB [Concomitant]
     Dosage: PRN
  14. LISINOPRIL [Concomitant]
     Dosage: 20 MG, 2X/DAY
  15. PREMARIN [Concomitant]
     Dosage: UNKNOWN

REACTIONS (20)
  - ACTIVITIES OF DAILY LIVING IMPAIRED [None]
  - AGGRESSION [None]
  - ANGER [None]
  - CARPAL TUNNEL SYNDROME [None]
  - CRYING [None]
  - DEPRESSION [None]
  - DRUG WITHDRAWAL SYNDROME [None]
  - FALL [None]
  - HEAD BANGING [None]
  - HOSTILITY [None]
  - IMPULSIVE BEHAVIOUR [None]
  - MOOD SWINGS [None]
  - NERVOUSNESS [None]
  - PARANOIA [None]
  - PSYCHOTIC DISORDER [None]
  - RESTLESSNESS [None]
  - SEROTONIN SYNDROME [None]
  - SOMNAMBULISM [None]
  - TINNITUS [None]
  - WEIGHT INCREASED [None]
